FAERS Safety Report 20644320 (Version 1)
Quarter: 2022Q1

REPORT INFORMATION
  Report Type: Spontaneous
  Country: US (occurrence: None)
  Receive Date: 20220326
  Receipt Date: 20220326
  Transmission Date: 20220423
  Serious: Yes (Hospitalization)
  Sender: FDA-Public Use
  Company Number: None

PATIENT
  Age: 69 Year
  Sex: Female
  Weight: 57.1 kg

DRUGS (3)
  1. FLUOROURACIL [Suspect]
     Active Substance: FLUOROURACIL
     Dates: end: 20220315
  2. LEUCOVORIN CALCIUM [Suspect]
     Active Substance: LEUCOVORIN CALCIUM
     Dates: end: 20220315
  3. ELOXATIN [Suspect]
     Active Substance: OXALIPLATIN
     Dates: end: 20220315

REACTIONS (4)
  - Pyrexia [None]
  - Diarrhoea [None]
  - Abdominal pain [None]
  - Clostridium test positive [None]

NARRATIVE: CASE EVENT DATE: 20220324
